FAERS Safety Report 5676844-5 (Version None)
Quarter: 2008Q1

REPORT INFORMATION
  Report Type: 
  Country: None (occurrence: None)
  Receive Date: 20080324
  Receipt Date: 20080313
  Transmission Date: 20080703
  Serious: Yes (Hospitalization, Other)
  Sender: FDA-Public Use
  Company Number: GB-BAYER-200710734BNE

PATIENT
  Age: 57 Year
  Sex: Male
  Weight: 83 kg

DRUGS (12)
  1. SORAFENIB [Suspect]
     Indication: NON-SMALL CELL LUNG CANCER
     Dosage: TOTAL DAILY DOSE: 800 MG
     Route: 048
     Dates: start: 20070523, end: 20070627
  2. SORAFENIB [Suspect]
     Dosage: TOTAL DAILY DOSE: 400 MG
     Route: 048
     Dates: start: 20070704, end: 20070725
  3. CARBOPLATIN [Suspect]
     Indication: NON-SMALL CELL LUNG CANCER
     Dates: start: 20070412, end: 20070412
  4. PACLITAXEL [Suspect]
     Indication: NON-SMALL CELL LUNG CANCER
     Dates: start: 20070412, end: 20070412
  5. TRIMETHOPRIM [Concomitant]
     Route: 048
     Dates: start: 20070620, end: 20070626
  6. DOMPERIDONE [Concomitant]
     Indication: PROPHYLAXIS
     Route: 048
     Dates: start: 20061229
  7. PHENYTOIN [Concomitant]
     Indication: PROPHYLAXIS
     Route: 048
     Dates: start: 19980101
  8. OMEPRAZOLE [Concomitant]
     Indication: PROPHYLAXIS
     Route: 048
     Dates: start: 20061230
  9. TRAMADOL HCL [Concomitant]
     Indication: ANALGESIA
     Route: 048
     Dates: start: 20070703, end: 20070726
  10. DEXAMETHASONE TAB [Concomitant]
     Indication: ANALGESIA
     Route: 048
     Dates: start: 20070725
  11. PARACETAMOL [Concomitant]
     Indication: ANALGESIA
     Route: 048
     Dates: start: 20070619
  12. DICLOFENAC SODIUM [Concomitant]
     Indication: ANALGESIA
     Route: 048
     Dates: start: 20070502

REACTIONS (9)
  - BODY TEMPERATURE INCREASED [None]
  - CHEST PAIN [None]
  - CONVULSION [None]
  - DYSURIA [None]
  - INFECTION [None]
  - POLLAKIURIA [None]
  - PROSTATE EXAMINATION ABNORMAL [None]
  - URETHRITIS [None]
  - URINARY RETENTION [None]
